FAERS Safety Report 5405628-8 (Version None)
Quarter: 2007Q3

REPORT INFORMATION
  Report Type: 
  Country: None (occurrence: None)
  Receive Date: 20070806
  Receipt Date: 20070727
  Transmission Date: 20080115
  Serious: Yes (Hospitalization)
  Sender: FDA-Public Use
  Company Number: PHBS2007PT12594

PATIENT
  Age: 56 Year
  Sex: Female

DRUGS (5)
  1. PROMETAX [Suspect]
     Indication: DEMENTIA
     Dosage: 3 MG, UNK
     Route: 048
     Dates: start: 20070101
  2. ALPRAZOLAM [Concomitant]
     Dosage: 6 MG, QD
  3. SINEMET [Concomitant]
  4. VENLAFAXINE HCL [Concomitant]
     Dosage: 150 MG, QD
  5. SELEGILINE HYDROCHLORIDE [Concomitant]

REACTIONS (6)
  - AGGRESSION [None]
  - FLIGHT OF IDEAS [None]
  - INAPPROPRIATE AFFECT [None]
  - INSOMNIA [None]
  - MANIA [None]
  - SPEECH DISORDER [None]
